FAERS Safety Report 4998912-3 (Version None)
Quarter: 2006Q2

REPORT INFORMATION
  Report Type: 
  Country: None (occurrence: None)
  Receive Date: 20060510
  Receipt Date: 20060405
  Transmission Date: 20061013
  Serious: Yes (Hospitalization, Disabling)
  Sender: FDA-Public Use
  Company Number: US-MERCK-0604USA00682

PATIENT
  Age: 78 Year
  Sex: Female
  Weight: 75 kg

DRUGS (8)
  1. VIOXX [Suspect]
     Indication: ARTHRITIS
     Route: 048
     Dates: start: 20011201, end: 20040901
  2. PREMARIN [Concomitant]
     Route: 065
  3. PRAVACHOL [Concomitant]
     Route: 065
  4. PREVACID [Concomitant]
     Route: 065
  5. INDAPAMIDE [Concomitant]
     Route: 065
  6. LORAZEPAM [Concomitant]
     Route: 065
  7. MAXALT [Concomitant]
     Route: 065
  8. HYDROXYCHLOROQUINE SULFATE [Concomitant]
     Route: 065

REACTIONS (2)
  - CEREBROVASCULAR ACCIDENT [None]
  - RHEUMATOID ARTHRITIS [None]
